FAERS Safety Report 6526028-3 (Version None)
Quarter: 2010Q1

REPORT INFORMATION
  Report Type: 
  Country: None (occurrence: None)
  Receive Date: 20100104
  Receipt Date: 20080623
  Transmission Date: 20100710
  Serious: Yes (Other)
  Sender: FDA-Public Use
  Company Number: US-BAXTER-2009BH003386

PATIENT

DRUGS (4)
  1. GAMMAGARD S/D [Suspect]
     Indication: IMMUNODEFICIENCY COMMON VARIABLE
     Dates: start: 20051201
  2. GAMMAGARD S/D [Suspect]
     Indication: SELECTIVE IGA IMMUNODEFICIENCY
     Dates: start: 20051201
  3. GAMMAGARD S/D [Suspect]
  4. GAMMAGARD S/D [Suspect]

REACTIONS (4)
  - BRONCHITIS [None]
  - PNEUMONIA [None]
  - SINUSITIS [None]
  - UPPER RESPIRATORY TRACT INFECTION [None]
